APPROVED DRUG PRODUCT: MEKINIST
Active Ingredient: TRAMETINIB DIMETHYL SULFOXIDE
Strength: EQ 2MG
Dosage Form/Route: TABLET;ORAL
Application: N204114 | Product #003
Applicant: NOVARTIS PHARMACEUTICALS CORP
Approved: May 29, 2013 | RLD: Yes | RS: Yes | Type: RX

PATENTS:
Patent 8703781 | Expires: Oct 15, 2030
Patent 8703781 | Expires: Oct 15, 2030
Patent 8703781 | Expires: Oct 15, 2030
Patent 8952018 | Expires: Oct 15, 2030
Patent 10869869 | Expires: Aug 30, 2033
Patent 8703781 | Expires: Oct 15, 2030
Patent 8703781 | Expires: Oct 15, 2030
Patent 9271941 | Expires: Jan 28, 2032
Patent 7378423 | Expires: May 29, 2027
Patent 9399021 | Expires: Jan 28, 2032
Patent 8580304 | Expires: Jan 28, 2032
Patent 9155706 | Expires: Jan 28, 2032
Patent 7378423*PED | Expires: Nov 29, 2027
Patent 8580304*PED | Expires: Jul 28, 2032
Patent 9155706*PED | Expires: Jul 28, 2032
Patent 8952018*PED | Expires: Apr 15, 2031
Patent 9271941*PED | Expires: Jul 28, 2032
Patent 8703781*PED | Expires: Apr 15, 2031
Patent 10869869*PED | Expires: Feb 28, 2034
Patent 9399021*PED | Expires: Jul 28, 2032

EXCLUSIVITY:
Code: I-908 | Date: Mar 16, 2026
Code: ODE-428 | Date: Mar 16, 2030
Code: PED | Date: Sep 16, 2026
Code: PED | Date: Sep 16, 2030